FAERS Safety Report 8423446 (Version 13)
Quarter: 2014Q2

REPORT INFORMATION
  Report Type: Report from Study
  Country: CA (occurrence: CA)
  Receive Date: 20120223
  Receipt Date: 20140418
  Transmission Date: 20141212
  Serious: Yes (Death, Hospitalization, Other)
  Sender: FDA-Public Use
  Company Number: PHHY2012CA014278

PATIENT
  Age: 66 Year
  Sex: Female

DRUGS (6)
  1. SANDOSTATIN LAR [Suspect]
     Indication: PANCREATIC NEUROENDOCRINE TUMOUR
     Dosage: 30 MG, EVERY 3 WEEKS
     Route: 030
     Dates: start: 20061010
  2. SANDOSTATIN LAR [Suspect]
     Indication: CARCINOID TUMOUR
     Dosage: 30 MG, EVERY 3 WEEKS
     Route: 030
     Dates: start: 20090105, end: 20140331
  3. AFINITOR [Suspect]
     Indication: PANCREATIC NEUROENDOCRINE TUMOUR
     Dosage: 10 MG, QD
     Route: 048
     Dates: start: 20120906
  4. AFINITOR [Suspect]
     Indication: CARCINOID TUMOUR
     Dosage: 10 MG, QD
     Route: 048
     Dates: start: 20120907
  5. AFINITOR [Suspect]
     Dosage: 5 MG, QD
     Route: 048
  6. AFINITOR [Suspect]
     Dosage: 10 MG, QD
     Route: 048
     Dates: end: 201401

REACTIONS (20)
  - Death [Fatal]
  - Cerebrovascular accident [Unknown]
  - Thrombosis [Unknown]
  - Hypoglycaemia [Unknown]
  - Dysphagia [Unknown]
  - Hepatic lesion [Unknown]
  - Hepatic neoplasm [Unknown]
  - Nervous system disorder [Unknown]
  - Microangiopathy [Unknown]
  - Fall [Unknown]
  - Rib fracture [Unknown]
  - Herpes zoster [Recovering/Resolving]
  - Malignant neoplasm progression [Unknown]
  - Blood chromogranin A increased [Unknown]
  - Speech disorder [Unknown]
  - Mucosal inflammation [Unknown]
  - Blood pressure increased [Unknown]
  - Urinary tract infection [Unknown]
  - Blood glucose increased [Unknown]
  - Nausea [Unknown]
